FAERS Safety Report 8486219-1 (Version None)
Quarter: 2012Q3

REPORT INFORMATION
  Report Type: 
  Country: None (occurrence: None)
  Receive Date: 20120703
  Receipt Date: 20120621
  Transmission Date: 20120928
  Serious: No
  Sender: FDA-Public Use
  Company Number: US-ELI_LILLY_AND_COMPANY-US201206007631

PATIENT
  Sex: Female
  Weight: 74.376 kg

DRUGS (4)
  1. ADCIRCA [Suspect]
     Dosage: UNK, UNKNOWN
     Route: 065
  2. TYVASO [Concomitant]
     Indication: PULMONARY HYPERTENSION
     Dosage: UNK, QID
     Dates: start: 20120223
  3. ASPIRIN [Concomitant]
     Dosage: UNK, UNKNOWN
     Route: 065
  4. DIURETICS [Concomitant]
     Dosage: UNK, UNKNOWN
     Route: 065

REACTIONS (3)
  - MALAISE [None]
  - HEADACHE [None]
  - VISION BLURRED [None]
